FAERS Safety Report 4523047-3 (Version None)
Quarter: 2004Q4

REPORT INFORMATION
  Report Type: 
  Country: None (occurrence: None)
  Receive Date: 20041207
  Receipt Date: 20041207
  Transmission Date: 20050328
  Serious: Yes (Hospitalization)
  Sender: FDA-Public Use
  Company Number: None

PATIENT
  Sex: Male

DRUGS (7)
  1. LEVETIRACETAM [Suspect]
     Indication: CONVULSION
     Dosage: 1500MG/1000M    AM/PM    ORAL
     Route: 048
  2. TEGRETOL-XR [Concomitant]
  3. GABAPENTIN [Concomitant]
  4. VENLAFAXINE HCL [Concomitant]
  5. RISPERIDONE [Concomitant]
  6. RANITIDINE [Concomitant]
  7. KCL TAB [Concomitant]

REACTIONS (1)
  - SUICIDAL IDEATION [None]
